FAERS Safety Report 9119246 (Version 1)
Quarter: 2013Q1

REPORT INFORMATION
  Report Type: Spontaneous
  Country: US (occurrence: None)
  Receive Date: 20130221
  Receipt Date: 20130221
  Transmission Date: 20140127
  Serious: No
  Sender: FDA-Public Use
  Company Number: None

PATIENT
  Age: 51 Year
  Sex: Female
  Weight: 61.24 kg

DRUGS (1)
  1. ATORVASTATIN [Suspect]
     Indication: BLOOD CHOLESTEROL INCREASED
     Dosage: 1 TABLET, DAILY PO
     Route: 048
     Dates: start: 20130216, end: 20130217

REACTIONS (6)
  - Heart rate irregular [None]
  - Multiple allergies [None]
  - Blood pressure systolic increased [None]
  - Palpitations [None]
  - Product substitution issue [None]
  - Sleep disorder [None]
